FAERS Safety Report 12808163 (Version 1)
Quarter: 2016Q4

REPORT INFORMATION
  Report Type: Spontaneous
  Country: ES (occurrence: ES)
  Receive Date: 20161004
  Receipt Date: 20161004
  Transmission Date: 20170207
  Serious: Yes (Death)
  Sender: FDA-Public Use
  Company Number: ES-INCYTE CORPORATION-2016IN004400

PATIENT
  Age: 76 Year
  Sex: Male
  Weight: 65.5 kg

DRUGS (5)
  1. JAKAVI [Suspect]
     Active Substance: RUXOLITINIB
     Indication: MYELOFIBROSIS
     Dosage: 15 MG, Q12H (1 TABLET EVERY 24 H)
     Route: 048
     Dates: start: 20111216
  2. HYDREA [Concomitant]
     Active Substance: HYDROXYUREA
     Dosage: 600 MG, UNK
     Route: 065
     Dates: start: 20160105
  3. ENALAPRIL [Concomitant]
     Active Substance: ENALAPRIL
     Indication: HYPERTENSION
     Dosage: 5 MG, UNK
     Route: 065
     Dates: start: 20150430
  4. HYDREA [Concomitant]
     Active Substance: HYDROXYUREA
     Indication: SPLENOMEGALY
     Dosage: 500 MG, UNK
     Route: 065
     Dates: start: 20151215
  5. URSOBILANE [Concomitant]
     Indication: CHOLELITHIASIS
     Dosage: 300 MG, UNK
     Route: 065
     Dates: start: 201005

REACTIONS (6)
  - Blood lactate dehydrogenase increased [Unknown]
  - Acute myeloid leukaemia [Fatal]
  - Pyrexia [Unknown]
  - Weight decreased [Unknown]
  - Abdominal pain upper [Unknown]
  - General physical health deterioration [Unknown]

NARRATIVE: CASE EVENT DATE: 20160117
